FAERS Safety Report 25518541 (Version 1)
Quarter: 2025Q3

REPORT INFORMATION
  Report Type: Spontaneous
  Country: GB (occurrence: GB)
  Receive Date: 20250704
  Receipt Date: 20250704
  Transmission Date: 20251021
  Serious: Yes (Other)
  Sender: ASTELLAS
  Company Number: GB-ASTELLAS-2022US007783

PATIENT
  Age: 28 Year
  Sex: Male

DRUGS (1)
  1. GILTERITINIB [Suspect]
     Active Substance: GILTERITINIB
     Indication: Product used for unknown indication
     Dosage: 120 MG, ONCE DAILY (CYCLE)
     Route: 065

REACTIONS (2)
  - Graft versus host disease [Unknown]
  - Febrile neutropenia [Unknown]
